FAERS Safety Report 7465732-X (Version None)
Quarter: 2011Q2

REPORT INFORMATION
  Report Type: 
  Country: None (occurrence: None)
  Receive Date: 20110509
  Receipt Date: 20110427
  Transmission Date: 20111010
  Serious: Yes (Life-Threatening, Hospitalization)
  Sender: FDA-Public Use
  Company Number: Z0002488B

PATIENT
  Sex: Male
  Weight: 81 kg

DRUGS (1)
  1. RELENZA [Suspect]
     Indication: INFLUENZA
     Dosage: 600MG TWICE PER DAY
     Route: 042
     Dates: start: 20110122, end: 20110201

REACTIONS (1)
  - ACUTE RESPIRATORY DISTRESS SYNDROME [None]
